FAERS Safety Report 13950048 (Version 1)
Quarter: 2017Q3

REPORT INFORMATION
  Report Type: Spontaneous
  Country: US (occurrence: US)
  Receive Date: 20170908
  Receipt Date: 20170908
  Transmission Date: 20171128
  Serious: No
  Sender: FDA-Public Use
  Company Number: US-ROCHE-1134984

PATIENT
  Sex: Male

DRUGS (9)
  1. PREMARIN [Concomitant]
     Active Substance: ESTROGENS, CONJUGATED
     Route: 065
  2. ALLOPURINOL. [Concomitant]
     Active Substance: ALLOPURINOL
     Route: 065
  3. BENADRYL [Concomitant]
     Active Substance: DIPHENHYDRAMINE HYDROCHLORIDE
     Route: 065
  4. PROCHLORPERAZINE. [Concomitant]
     Active Substance: PROCHLORPERAZINE
     Route: 065
  5. LASIX [Concomitant]
     Active Substance: FUROSEMIDE
     Route: 065
  6. RITUXAN [Suspect]
     Active Substance: RITUXIMAB
     Indication: NON-HODGKIN^S LYMPHOMA
     Route: 065
  7. PRELONE [Concomitant]
     Active Substance: PREDNISOLONE
     Route: 065
  8. GLIPIZIDE. [Concomitant]
     Active Substance: GLIPIZIDE
     Route: 065
  9. ZOLOFT [Concomitant]
     Active Substance: SERTRALINE HYDROCHLORIDE
     Route: 065

REACTIONS (12)
  - Dysuria [Unknown]
  - Pain [Unknown]
  - Night sweats [Unknown]
  - Dyspnoea exertional [Unknown]
  - Oedema [Unknown]
  - Arthralgia [Unknown]
  - Pharyngitis [Unknown]
  - Sinusitis [Unknown]
  - Pruritus [Unknown]
  - Dermatitis [Unknown]
  - Abdominal pain [Unknown]
  - Headache [Unknown]
